FAERS Safety Report 6615184-4 (Version None)
Quarter: 2010Q1

REPORT INFORMATION
  Report Type: 
  Country: None (occurrence: None)
  Receive Date: 20100305
  Receipt Date: 20100225
  Transmission Date: 20100710
  Serious: Yes (Hospitalization, Other)
  Sender: FDA-Public Use
  Company Number: PHHY2008BR19241

PATIENT
  Sex: Male
  Weight: 80 kg

DRUGS (1)
  1. DIOVAN HCT [Suspect]
     Indication: HYPERTENSION
     Dosage: 1 TABLET (160/25 MG) DAILY
     Route: 048
     Dates: start: 20040101

REACTIONS (6)
  - CARDIAC OPERATION [None]
  - CHEST PAIN [None]
  - CORONARY ARTERY DISEASE [None]
  - GOUT [None]
  - GRAFT COMPLICATION [None]
  - VASCULAR GRAFT [None]
